FAERS Safety Report 6863593 (Version 2)
Quarter: 2019Q3

REPORT INFORMATION
  Report Type: Spontaneous
  Country: FR (occurrence: FR)
  Receive Date: 20081222
  Receipt Date: 20190723
  Transmission Date: 20191005
  Serious: Yes (Death, Hospitalization, Other)
  Sender: FDA-Public Use
  Company Number: FR-BRISTOL-MYERS SQUIBB COMPANY-14445001

PATIENT
  Age: 25 Year
  Sex: Male

DRUGS (3)
  1. BLEOMYCIN SULFATE [Suspect]
     Active Substance: BLEOMYCIN SULFATE
     Indication: TESTICULAR GERM CELL CANCER
     Dosage: UNK
     Route: 041
     Dates: start: 20080529, end: 200808
  2. CISPLATYL [Suspect]
     Active Substance: CISPLATIN
     Indication: TESTICULAR GERM CELL CANCER
     Dosage: UNK
     Route: 041
     Dates: start: 20080529, end: 200808
  3. VEPESIDE [Suspect]
     Active Substance: ETOPOSIDE
     Indication: TESTICULAR GERM CELL CANCER
     Dosage: UNK
     Route: 041
     Dates: start: 20080529, end: 200808

REACTIONS (4)
  - Vena cava thrombosis [Fatal]
  - Respiratory failure [Fatal]
  - Interstitial lung disease [Fatal]
  - Deep vein thrombosis [Fatal]

NARRATIVE: CASE EVENT DATE: 20080814
